FAERS Safety Report 9214533 (Version 2)
Quarter: 2013Q2

REPORT INFORMATION
  Report Type: Spontaneous
  Country: GB (occurrence: GB)
  Receive Date: 20130405
  Receipt Date: 20130416
  Transmission Date: 20140414
  Serious: Yes (Other)
  Sender: FDA-Public Use
  Company Number: GB-ROCHE-1210062

PATIENT
  Age: 51 Year
  Sex: Female
  Weight: 103 kg

DRUGS (5)
  1. PERJETA [Suspect]
     Indication: BREAST CANCER METASTATIC
     Route: 065
     Dates: start: 20130321
  2. DENOSUMAB [Concomitant]
     Route: 058
     Dates: start: 20130221
  3. DOCETAXEL [Concomitant]
     Route: 042
     Dates: start: 20130221
  4. TRASTUZUMAB [Concomitant]
     Route: 042
     Dates: start: 20130221
  5. TRASTUZUMAB [Concomitant]
     Route: 042
     Dates: start: 20130221

REACTIONS (5)
  - Pneumonia [Recovering/Resolving]
  - Respiratory disorder [Recovering/Resolving]
  - Chills [Unknown]
  - Pyrexia [Unknown]
  - Chest pain [Unknown]
